FAERS Safety Report 11942953 (Version 1)
Quarter: 2016Q1

REPORT INFORMATION
  Report Type: Spontaneous
  Country: US (occurrence: US)
  Receive Date: 20160125
  Receipt Date: 20160125
  Transmission Date: 20160526
  Serious: No
  Sender: FDA-Public Use
  Company Number: US-UNITED THERAPEUTICS-UNT-2015-009640

PATIENT
  Age: 39 Year
  Sex: Female
  Weight: 88.44 kg

DRUGS (5)
  1. REMODULIN [Suspect]
     Active Substance: TREPROSTINIL
     Indication: PULMONARY ARTERIAL HYPERTENSION
     Dosage: 0.022 ?G/KG/MIN, CONTINUING
     Route: 058
     Dates: start: 20111207
  2. TRACLEER [Concomitant]
     Active Substance: BOSENTAN
     Indication: PRODUCT USED FOR UNKNOWN INDICATION
  3. REVATIO [Concomitant]
     Active Substance: SILDENAFIL CITRATE
     Indication: PRODUCT USED FOR UNKNOWN INDICATION
  4. REMODULIN [Suspect]
     Active Substance: TREPROSTINIL
     Dosage: 0.098 ?G/KG/MIN, CONTINUING
     Route: 058
  5. COUMADIN [Concomitant]
     Active Substance: WARFARIN SODIUM
     Indication: PRODUCT USED FOR UNKNOWN INDICATION

REACTIONS (9)
  - Diarrhoea [Recovered/Resolved]
  - Bronchitis [Unknown]
  - Infusion site warmth [Unknown]
  - Infusion site scar [Unknown]
  - Infusion site pain [Recovered/Resolved]
  - Infusion site infection [Recovered/Resolved]
  - Infusion site erythema [Unknown]
  - Groin pain [Recovered/Resolved]
  - Infusion site cellulitis [Unknown]

NARRATIVE: CASE EVENT DATE: 20150807
